FAERS Safety Report 5233727-2 (Version None)
Quarter: 2007Q1

REPORT INFORMATION
  Report Type: 
  Country: None (occurrence: None)
  Receive Date: 20070208
  Receipt Date: 20000814
  Transmission Date: 20070707
  Serious: Yes (Other)
  Sender: FDA-Public Use
  Company Number: US-BAYER-200710371BWH

PATIENT
  Age: 70 Year
  Sex: Male
  Weight: 74 kg

DRUGS (15)
  1. VARDENAFIL [Suspect]
     Indication: ERECTILE DYSFUNCTION
     Dosage: TOTAL DAILY DOSE: 10 MG  UNIT DOSE: 10 MG
     Route: 048
     Dates: start: 20000814
  2. VARDENAFIL [Suspect]
     Dosage: TOTAL DAILY DOSE: 10 MG  UNIT DOSE: 10 MG
     Route: 048
     Dates: start: 20000811
  3. VARDENAFIL [Suspect]
     Dosage: TOTAL DAILY DOSE: 10 MG  UNIT DOSE: 10 MG
     Route: 048
     Dates: start: 20000808
  4. VARDENAFIL [Suspect]
     Dosage: TOTAL DAILY DOSE: 10 MG  UNIT DOSE: 10 MG
     Route: 048
     Dates: start: 20000730
  5. VARDENAFIL [Suspect]
     Dosage: TOTAL DAILY DOSE: 10 MG  UNIT DOSE: 10 MG
     Route: 048
     Dates: start: 20000723
  6. VARDENAFIL [Suspect]
     Dosage: TOTAL DAILY DOSE: 10 MG  UNIT DOSE: 10 MG
     Route: 048
     Dates: start: 20000720
  7. VARDENAFIL [Suspect]
     Dosage: TOTAL DAILY DOSE: 10 MG  UNIT DOSE: 10 MG
     Route: 048
     Dates: start: 20000510, end: 20000715
  8. VARDENAFIL [Suspect]
     Dosage: TOTAL DAILY DOSE: 10 MG  UNIT DOSE: 10 MG
     Route: 048
     Dates: start: 20000819, end: 20001112
  9. AMITRIPTYLINE HCL [Concomitant]
     Dates: start: 20000804
  10. ASPIRIN [Concomitant]
     Dates: start: 20000804
  11. CARBAMAPEZINE [Concomitant]
     Dates: start: 19870101, end: 20000803
  12. GLUCOPAGE [Concomitant]
     Dates: start: 19980101
  13. METOPROLOL [Concomitant]
     Dates: start: 20000804
  14. NEURONTIN [Concomitant]
     Dates: start: 20000804
  15. VERAPAMIL [Concomitant]
     Dates: start: 19850101

REACTIONS (1)
  - CONVULSION [None]
